FAERS Safety Report 8509898-9 (Version None)
Quarter: 2012Q3

REPORT INFORMATION
  Report Type: 
  Country: None (occurrence: None)
  Receive Date: 20120713
  Receipt Date: 20120711
  Transmission Date: 20120928
  Serious: Yes (Hospitalization, Other)
  Sender: FDA-Public Use
  Company Number: US-BAYER-2012-069481

PATIENT
  Age: 47 Year
  Sex: Female

DRUGS (6)
  1. SEROQUEL [Concomitant]
  2. BETASERON [Suspect]
     Indication: MULTIPLE SCLEROSIS
     Dosage: 0.25 MG, UNK
     Route: 058
     Dates: start: 20070101, end: 20120601
  3. BETASERON [Suspect]
     Dosage: .25 MG, QOD
     Route: 058
     Dates: start: 20120701
  4. ARICEPT [Concomitant]
  5. CYMBALTA [Concomitant]
  6. XANAX [Concomitant]

REACTIONS (7)
  - HEMIPARESIS [None]
  - MULTIPLE SCLEROSIS RELAPSE [None]
  - DYSKINESIA [None]
  - DYSARTHRIA [None]
  - FUNGAL INFECTION [None]
  - HYPOAESTHESIA [None]
  - ABASIA [None]
